FAERS Safety Report 6567598-9 (Version None)
Quarter: 2010Q1

REPORT INFORMATION
  Report Type: 
  Country: None (occurrence: None)
  Receive Date: 20100202
  Receipt Date: 20100129
  Transmission Date: 20100710
  Serious: Yes (Death, Other)
  Sender: FDA-Public Use
  Company Number: PHHY2009DE56460

PATIENT
  Sex: Female

DRUGS (3)
  1. EXELON [Suspect]
     Indication: DEMENTIA
     Dosage: 4.6 MG, QD
     Route: 062
     Dates: start: 20091030, end: 20091201
  2. AMANTADINE HCL [Concomitant]
     Indication: EXTRAPYRAMIDAL DISORDER
     Dosage: 100 MG, PER DAY
     Route: 048
  3. AXURA [Concomitant]
     Indication: DEMENTIA
     Dosage: 20 MG, PER DAY
     Route: 048
     Dates: start: 20060202

REACTIONS (3)
  - DEATH [None]
  - GASTROINTESTINAL HAEMORRHAGE [None]
  - RECTAL TENESMUS [None]
